FAERS Safety Report 7945548-8 (Version None)
Quarter: 2011Q4

REPORT INFORMATION
  Report Type: 
  Country: None (occurrence: None)
  Receive Date: 20111125
  Receipt Date: 20111117
  Transmission Date: 20120403
  Serious: Yes (Death, Congenital Anomaly)
  Sender: FDA-Public Use
  Company Number: DKLU1074907

PATIENT
  Age: 40 Week
  Sex: Female

DRUGS (2)
  1. LAMOTRIGINE [Suspect]
     Indication: FOETAL EXPOSURE DURING PREGNANCY
     Dosage: TRANSPLACENTAL
     Route: 064
  2. ONFI [Suspect]
     Indication: FOETAL EXPOSURE DURING PREGNANCY
     Dosage: TRANSPLACENTAL
     Route: 064

REACTIONS (6)
  - INFECTION [None]
  - MATERNAL DRUGS AFFECTING FOETUS [None]
  - LARYNGOMALACIA [None]
  - IMMATURE RESPIRATORY SYSTEM [None]
  - MATERNAL EXPOSURE DURING PREGNANCY [None]
  - PREGNANCY [None]
